FAERS Safety Report 9752338 (Version 4)
Quarter: 2014Q2

REPORT INFORMATION
  Report Type: Report from Study
  Country: HU (occurrence: HU)
  Receive Date: 20131213
  Receipt Date: 20140610
  Transmission Date: 20141212
  Serious: Yes (Death, Hospitalization)
  Sender: FDA-Public Use
  Company Number: HU-TEVA-450248USA

PATIENT
  Age: 75 Year
  Sex: Male

DRUGS (13)
  1. BENDAMUSTINE [Suspect]
     Indication: NON-HODGKIN^S LYMPHOMA UNSPECIFIED HISTOLOGY INDOLENT
     Dosage: ONCE IN FOUR WEEKS
     Route: 042
     Dates: start: 20130925, end: 20131025
  2. BENDAMUSTINE [Suspect]
     Dosage: ONCE IN FOUR WEEKS
     Route: 042
     Dates: start: 20131024
  3. RITUXIMAB [Suspect]
     Indication: NON-HODGKIN^S LYMPHOMA UNSPECIFIED HISTOLOGY INDOLENT
     Dosage: WITH DRUG CONCENTRATION 1.52MG/ML ONCE IN FOUR WEEKS
     Route: 042
     Dates: start: 20130925
  4. RITUXIMAB [Suspect]
     Dosage: WITH DRUG CONCENTRATION 1.52MG/ML ONCE IN FOUR WEEKS
     Route: 042
     Dates: start: 20131024
  5. PANTOPRAZOLE [Concomitant]
     Indication: GASTRITIS EROSIVE
  6. ENALAPRIL [Concomitant]
     Indication: HYPERTENSION
  7. BISOPROLOL [Concomitant]
     Indication: CARDIOVASCULAR DISORDER
  8. BISOPROLOL [Concomitant]
     Indication: HYPERTENSION
  9. ACETYLSALICYLIC ACID [Concomitant]
     Indication: CARDIOVASCULAR DISORDER
  10. VERAPAMIL [Concomitant]
     Indication: HYPERTENSION
  11. PIRACETAM [Concomitant]
     Indication: CEREBROVASCULAR DISORDER
  12. PIRACETAM [Concomitant]
     Indication: ENCEPHALOPATHY
  13. THIAMAZOLE [Concomitant]
     Indication: HYPERTHYROIDISM

REACTIONS (2)
  - Respiratory failure [Fatal]
  - Polyneuropathy [Recovered/Resolved]
